FAERS Safety Report 4365782-6 (Version None)
Quarter: 2004Q2

REPORT INFORMATION
  Report Type: 
  Country: None (occurrence: None)
  Receive Date: 20040520
  Receipt Date: 20040517
  Transmission Date: 20050107
  Serious: No
  Sender: FDA-Public Use
  Company Number: 2004PK00808

PATIENT
  Age: 29 Year
  Sex: Female

DRUGS (3)
  1. SYMBICORT TURBUHALER ^ASTRAZENECA^ [Suspect]
     Indication: ASTHMA
     Dosage: 4-6 PUFFS
     Dates: start: 20020701
  2. BUDESONID [Suspect]
     Indication: ASTHMA
     Dosage: 4 PUFF DAILY IH
     Route: 055
     Dates: start: 20020307, end: 20020701
  3. ALBUTEROL SULFATE [Suspect]
     Indication: ASTHMA
     Dosage: 2 PUFF TID IH
     Route: 055
     Dates: start: 20020307, end: 20020701

REACTIONS (4)
  - CAESAREAN SECTION [None]
  - DRUG EXPOSURE DURING PREGNANCY [None]
  - ECLAMPSIA [None]
  - PROLONGED LABOUR [None]
